FAERS Safety Report 25051248 (Version 1)
Quarter: 2025Q1

REPORT INFORMATION
  Report Type: Report from Study
  Country: BR (occurrence: BR)
  Receive Date: 20250307
  Receipt Date: 20250307
  Transmission Date: 20250409
  Serious: Yes (Other)
  Sender: JOHNSON AND JOHNSON
  Company Number: BR-JNJFOC-20250302740

PATIENT
  Age: 52 Year
  Sex: Female

DRUGS (7)
  1. GOLIMUMAB [Suspect]
     Active Substance: GOLIMUMAB
     Indication: Rheumatoid arthritis
     Route: 058
     Dates: start: 2023
  2. GOLIMUMAB [Suspect]
     Active Substance: GOLIMUMAB
     Route: 058
     Dates: start: 202403
  3. GOLIMUMAB [Suspect]
     Active Substance: GOLIMUMAB
     Indication: Rheumatoid arthritis
     Route: 058
     Dates: start: 202403
  4. GOLIMUMAB [Suspect]
     Active Substance: GOLIMUMAB
     Route: 058
     Dates: start: 2023
  5. GOLIMUMAB [Suspect]
     Active Substance: GOLIMUMAB
  6. CHLOROQUINE [Suspect]
     Active Substance: CHLOROQUINE
     Indication: COVID-19
     Route: 065
  7. METHOTREXATE [Suspect]
     Active Substance: METHOTREXATE
     Indication: Pain
     Route: 065

REACTIONS (5)
  - Jaw fracture [Recovering/Resolving]
  - Craniofacial fracture [Recovering/Resolving]
  - Road traffic accident [Recovering/Resolving]
  - Asthenia [Recovering/Resolving]
  - COVID-19 [Recovering/Resolving]
